FAERS Safety Report 10227150 (Version 1)
Quarter: 2014Q2

REPORT INFORMATION
  Report Type: Spontaneous
  Country: US (occurrence: None)
  Receive Date: 20140609
  Receipt Date: 20140609
  Transmission Date: 20141212
  Serious: No
  Sender: FDA-Public Use
  Company Number: None

PATIENT
  Age: 50 Year
  Sex: Female

DRUGS (1)
  1. TECFIDERA [Suspect]
     Indication: MULTIPLE SCLEROSIS
     Dosage: 120MG TWICE A DAY X 7 DAYS BY MOUTH THEN INCREASED DOSE
     Route: 048
     Dates: start: 20140424, end: 20140501

REACTIONS (2)
  - Abdominal discomfort [None]
  - Rash [None]
